FAERS Safety Report 10619523 (Version 3)
Quarter: 2014Q4

REPORT INFORMATION
  Report Type: Spontaneous
  Country: KR (occurrence: KR)
  Receive Date: 20141202
  Receipt Date: 20141204
  Transmission Date: 20150529
  Serious: Yes (Other)
  Sender: FDA-Public Use
  Company Number: KR-PFIZER INC-2014320090

PATIENT
  Sex: Male

DRUGS (2)
  1. ZELDOX [Suspect]
     Active Substance: ZIPRASIDONE
     Indication: HALLUCINATION, AUDITORY
  2. ZELDOX [Suspect]
     Active Substance: ZIPRASIDONE
     Indication: HALLUCINATION
     Dosage: 2 TABLETS TWICE DAILY (4 TABLETS DAILY
     Route: 048

REACTIONS (5)
  - Head banging [Not Recovered/Not Resolved]
  - Thirst [Not Recovered/Not Resolved]
  - Extrapyramidal disorder [Not Recovered/Not Resolved]
  - Abnormal behaviour [Not Recovered/Not Resolved]
  - Binge eating [Not Recovered/Not Resolved]
